FAERS Safety Report 25683336 (Version 1)
Quarter: 2025Q3

REPORT INFORMATION
  Report Type: Report from Study
  Country: US (occurrence: US)
  Receive Date: 20250814
  Receipt Date: 20250814
  Transmission Date: 20251021
  Serious: Yes (Hospitalization)
  Sender: ALEXION PHARMACEUTICALS
  Company Number: US-AstraZeneca-CH-00930147A

PATIENT
  Sex: Male

DRUGS (1)
  1. OSIMERTINIB [Suspect]
     Active Substance: OSIMERTINIB
     Route: 065

REACTIONS (7)
  - Contusion [Unknown]
  - Dry skin [Unknown]
  - Fatigue [Unknown]
  - Brain neoplasm [Unknown]
  - Headache [Unknown]
  - Product dose omission issue [Unknown]
  - Neoplasm [Unknown]
